FAERS Safety Report 4718273-4 (Version None)
Quarter: 2005Q3

REPORT INFORMATION
  Report Type: 
  Country: None (occurrence: None)
  Receive Date: 20050718
  Receipt Date: 20041220
  Transmission Date: 20060218
  Serious: No
  Sender: FDA-Public Use
  Company Number: 2004000971

PATIENT
  Sex: Female

DRUGS (2)
  1. TARCEVA [Suspect]
  2. BEVACIZUMAB [Suspect]

REACTIONS (3)
  - ALOPECIA [None]
  - MOUTH ULCERATION [None]
  - RASH [None]
